FAERS Safety Report 4303460-X (Version None)
Quarter: 2004Q1

REPORT INFORMATION
  Report Type: 
  Country: None (occurrence: None)
  Receive Date: 20040223
  Receipt Date: 20040212
  Transmission Date: 20041129
  Serious: Yes (Hospitalization)
  Sender: FDA-Public Use
  Company Number: 2004-01-1218

PATIENT
  Age: 55 Year
  Sex: Male
  Weight: 90.7194 kg

DRUGS (2)
  1. PEG-INTRON [Suspect]
     Indication: HEPATITIS C
     Dosage: 150 MCG QWK SUBCUTANEOUS
     Route: 058
     Dates: start: 20030801, end: 20040116
  2. REBETOL [Suspect]
     Indication: HEPATITIS C
     Dosage: 800 MG QD ORAL
     Route: 048
     Dates: start: 20030801, end: 20040116

REACTIONS (16)
  - CHEST DISCOMFORT [None]
  - CHEST PAIN [None]
  - COUGH [None]
  - DYSPNOEA [None]
  - HAEMATOCRIT DECREASED [None]
  - HAEMOGLOBIN DECREASED [None]
  - LYMPHOCYTE PERCENTAGE DECREASED [None]
  - NASOPHARYNGITIS [None]
  - PERICARDITIS [None]
  - PLATELET COUNT DECREASED [None]
  - PLEURITIC PAIN [None]
  - PO2 DECREASED [None]
  - RED BLOOD CELL COUNT DECREASED [None]
  - VENTILATION/PERFUSION SCAN ABNORMAL [None]
  - WHEEZING [None]
  - WHITE BLOOD CELL COUNT DECREASED [None]
